FAERS Safety Report 20479346 (Version 3)
Quarter: 2022Q3

REPORT INFORMATION
  Report Type: Spontaneous
  Country: JP (occurrence: JP)
  Receive Date: 20220216
  Receipt Date: 20220802
  Transmission Date: 20221027
  Serious: No
  Sender: FDA-Public Use
  Company Number: JP-GLAXOSMITHKLINE-JP2022JPN023815

PATIENT

DRUGS (7)
  1. SOTROVIMAB [Suspect]
     Active Substance: SOTROVIMAB
     Indication: COVID-19
     Dosage: 500 MG/DAY
     Route: 041
     Dates: start: 20220208, end: 20220208
  2. FAMOTIDINE [Suspect]
     Active Substance: FAMOTIDINE
     Indication: Vomiting
     Dosage: 40 MG PER DAY
     Route: 048
     Dates: start: 20210924, end: 20211007
  3. FAMOTIDINE [Suspect]
     Active Substance: FAMOTIDINE
     Indication: Abdominal pain upper
  4. CAMPHOR\MENTHOL\METHYL SALICYLATE [Suspect]
     Active Substance: CAMPHOR\MENTHOL\METHYL SALICYLATE
     Indication: Back pain
     Dosage: ON AN AS-NEEDED BASIS, IN PATCH FORM
     Dates: start: 20211105
  5. MAGNESIUM OXIDE [Suspect]
     Active Substance: MAGNESIUM OXIDE
     Indication: Dyschezia
     Dosage: 1500 MG PER DAY
     Route: 048
     Dates: start: 20211203, end: 20220102
  6. EPHEDRA SINICA STEM\HERBALS [Suspect]
     Active Substance: EPHEDRA SINICA STEM\HERBALS
     Indication: Rhinorrhoea
     Dosage: 9 G PER DAY
     Route: 048
     Dates: start: 20220208, end: 20220214
  7. CALONAL [Suspect]
     Active Substance: ACETAMINOPHEN
     Indication: Back pain
     Dosage: ON AN AS-NEEDED BASIS
     Route: 048
     Dates: start: 20220311

REACTIONS (1)
  - Exposure during pregnancy [Unknown]
